FAERS Safety Report 4448971-1 (Version None)
Quarter: 2004Q3

REPORT INFORMATION
  Report Type: 
  Country: None (occurrence: None)
  Receive Date: 20040909
  Receipt Date: 20040823
  Transmission Date: 20050211
  Serious: Yes (Other)
  Sender: FDA-Public Use
  Company Number: USA040876209

PATIENT
  Age: 57 Year
  Sex: Female

DRUGS (4)
  1. STRATTERA [Suspect]
     Indication: ATTENTION DEFICIT/HYPERACTIVITY DISORDER
     Dosage: 40 MG/1 DAY
     Dates: start: 20040801
  2. PROZAC [Concomitant]
     Indication: DEPRESSION
  3. ZOLOFT [Concomitant]
  4. HORMONE REPLACEMENT THERAPY [Concomitant]

REACTIONS (8)
  - ABNORMAL DREAMS [None]
  - DRUG DEPENDENCE [None]
  - DRUG INTERACTION [None]
  - EARLY MORNING AWAKENING [None]
  - HOT FLUSH [None]
  - INSOMNIA [None]
  - OBSESSIVE THOUGHTS [None]
  - SUICIDAL IDEATION [None]
